FAERS Safety Report 19997887 (Version 1)
Quarter: 2021Q4

REPORT INFORMATION
  Report Type: Spontaneous
  Country: JP (occurrence: JP)
  Receive Date: 20211026
  Receipt Date: 20211026
  Transmission Date: 20220303
  Serious: Yes (Hospitalization, Other)
  Sender: FDA-Public Use
  Company Number: JP-PFIZER INC-202101355111

PATIENT
  Age: 73 Year
  Sex: Male

DRUGS (5)
  1. METHYLPREDNISOLONE [Suspect]
     Active Substance: METHYLPREDNISOLONE
     Indication: COVID-19 pneumonia
     Dosage: UNK
  2. BARICITINIB [Suspect]
     Active Substance: BARICITINIB
     Dosage: UNK
  3. REMDESIVIR [Concomitant]
     Active Substance: REMDESIVIR
     Indication: COVID-19 pneumonia
     Dosage: UNK
  4. HEPARIN [Concomitant]
     Active Substance: HEPARIN SODIUM
     Indication: COVID-19 pneumonia
  5. AMPICILLIN SODIUM\SULBACTAM SODIUM [Concomitant]
     Active Substance: AMPICILLIN SODIUM\SULBACTAM SODIUM
     Dosage: UNK

REACTIONS (3)
  - Pneumonia pseudomonal [Unknown]
  - Pneumonia necrotising [Unknown]
  - Off label use [Unknown]
